FAERS Safety Report 25877318 (Version 1)
Quarter: 2025Q4

REPORT INFORMATION
  Report Type: Spontaneous
  Country: US (occurrence: US)
  Receive Date: 20251003
  Receipt Date: 20251003
  Transmission Date: 20260117
  Serious: Yes (Life-Threatening, Hospitalization)
  Sender: MACLEODS
  Company Number: US-MACLEODS PHARMA-MAC2025055497

PATIENT

DRUGS (2)
  1. METHIMAZOLE [Suspect]
     Active Substance: METHIMAZOLE
     Indication: Graves^ disease
     Route: 065
  2. ATENOLOL [Concomitant]
     Active Substance: ATENOLOL
     Indication: Graves^ disease
     Route: 065

REACTIONS (12)
  - Thyrotoxic crisis [Recovered/Resolved]
  - Sepsis [Recovered/Resolved]
  - Cellulitis [Recovered/Resolved]
  - Septic shock [Recovered/Resolved]
  - Hypokalaemia [Recovered/Resolved]
  - Hyponatraemia [Recovered/Resolved]
  - Neutropenia [Recovered/Resolved]
  - Respiratory failure [Recovered/Resolved]
  - Goitre [Recovered/Resolved]
  - Epiglottitis [Recovered/Resolved]
  - Beta haemolytic streptococcal infection [Recovered/Resolved]
  - Agranulocytosis [Recovered/Resolved]
